FAERS Safety Report 6055155-2 (Version None)
Quarter: 2009Q1

REPORT INFORMATION
  Report Type: 
  Country: None (occurrence: None)
  Receive Date: 20090122
  Receipt Date: 20090108
  Transmission Date: 20090719
  Serious: Yes (Death)
  Sender: FDA-Public Use
  Company Number: 039939

PATIENT
  Age: 74 Year
  Sex: Male

DRUGS (1)
  1. VERAPAMIL HCL [Suspect]

REACTIONS (2)
  - DRUG TOXICITY [None]
  - MEDICATION ERROR [None]
